FAERS Safety Report 16476892 (Version 5)
Quarter: 2020Q4

REPORT INFORMATION
  Report Type: Other
  Country: IT (occurrence: IT)
  Receive Date: 20190626
  Receipt Date: 20201210
  Transmission Date: 20210113
  Serious: Yes (Hospitalization, Other)
  Sender: FDA-Public Use
  Company Number: IT-ROCHE-2168226

PATIENT
  Age: 65 Year
  Sex: Female
  Weight: 55 kg

DRUGS (33)
  1. EUTIROX [Concomitant]
     Active Substance: LEVOTHYROXINE SODIUM
     Dosage: ONGOING = CHECKED
  2. RANITIDINE. [Concomitant]
     Active Substance: RANITIDINE
     Dates: start: 20180507, end: 20181002
  3. CEFEPIME [Concomitant]
     Active Substance: CEFEPIME HYDROCHLORIDE
  4. ENAPREN [Concomitant]
     Active Substance: ENALAPRIL MALEATE
  5. ZOLOFT [Concomitant]
     Active Substance: SERTRALINE HYDROCHLORIDE
     Dosage: ONGOING = CHECKED
     Dates: start: 20160803
  6. SOLDESAM [Concomitant]
     Active Substance: DEXAMETHASONE
     Dosage: ONGOING = CHECKED
     Dates: start: 20180502
  7. DEXAMETHASONE. [Concomitant]
     Active Substance: DEXAMETHASONE
     Dates: start: 20180507, end: 20181002
  8. AMIKACINA [Concomitant]
     Active Substance: AMIKACIN SULFATE
  9. EXEMESTANE. [Suspect]
     Active Substance: EXEMESTANE
     Indication: BREAST CANCER
     Route: 048
     Dates: start: 20190213, end: 20191030
  10. MYCOSTATIN [Concomitant]
     Active Substance: NYSTATIN
  11. TRASTUZUMAB. [Suspect]
     Active Substance: TRASTUZUMAB
     Indication: HER2 POSITIVE BREAST CANCER
     Dosage: LAST DOSE ON 29/MAY/2018
     Route: 042
     Dates: start: 20180507
  12. LAPATINIB [Suspect]
     Active Substance: LAPATINIB
     Indication: BREAST CANCER
     Route: 048
     Dates: start: 20200220
  13. PACLITAXEL. [Suspect]
     Active Substance: PACLITAXEL
     Indication: BREAST CANCER
     Dosage: LAST DOSE ON 16/OCT/2018
     Route: 042
     Dates: start: 20180731
  14. CHLORPHENIRAMINE. [Concomitant]
     Active Substance: CHLORPHENIRAMINE
     Dosage: ONGOING = CHECKED
     Dates: start: 20180507
  15. NATECAL [Concomitant]
     Active Substance: CALCIUM CARBONATE\CHOLECALCIFEROL
     Dosage: ONGOING = CHECKED
     Dates: start: 20190615
  16. PANTOPRAZOLE [Concomitant]
     Active Substance: PANTOPRAZOLE
     Dosage: ONGOING = CHECKED
     Dates: start: 20191015
  17. RAMIPRIL. [Concomitant]
     Active Substance: RAMIPRIL
     Indication: HYPERTENSION
     Dosage: ONGOING = CHECKED
     Dates: start: 20190701
  18. TEICOPLANINA [Concomitant]
     Active Substance: TEICOPLANIN
  19. PERTUZUMAB. [Suspect]
     Active Substance: PERTUZUMAB
     Indication: HER2 POSITIVE BREAST CANCER
     Dosage: LAST DOSE ON 29/MAY/2018
     Route: 042
     Dates: start: 20180507
  20. FLUCONAZOLO [Concomitant]
  21. DIBASE [Concomitant]
     Active Substance: CHOLECALCIFEROL
     Dosage: ONGOING = CHECKED
     Dates: start: 20180727
  22. BISOPROLOLO [Concomitant]
     Active Substance: BISOPROLOL FUMARATE
     Indication: HYPERTENSION
     Dosage: ONGOING = CHECKED
     Dates: start: 20190701
  23. LEVOFLOXACIN. [Concomitant]
     Active Substance: LEVOFLOXACIN
  24. DUROGESIC [Concomitant]
     Active Substance: FENTANYL
  25. CAPECITABINE. [Suspect]
     Active Substance: CAPECITABINE
     Indication: BREAST CANCER
     Dosage: MOST RECENT DOSE OF CAPECITABINE WAS RECEIVED ON 01/OCT/2020.
     Route: 048
     Dates: start: 20200220
  26. DOCETAXEL. [Suspect]
     Active Substance: DOCETAXEL
     Indication: HER2 POSITIVE BREAST CANCER
     Dosage: LAST DOSE ON 19/JUN/2018
     Route: 042
     Dates: start: 20180507
  27. POLASE [ASPARTIC ACID;MAGNESIUM CITRATE;POTASSIUM GLUCONATE] [Concomitant]
  28. CACIT (ITALY) [Concomitant]
     Dates: start: 20180727
  29. TRASTUZUMAB EMTANSINE [Suspect]
     Active Substance: ADO-TRASTUZUMAB EMTANSINE
     Indication: BREAST CANCER
     Route: 042
     Dates: start: 20191009
  30. UREA. [Concomitant]
     Active Substance: UREA
     Indication: SKIN TOXICITY
     Dosage: ONGOING = CHECKED
     Dates: start: 20200415
  31. TACHIPIRINA [Concomitant]
     Active Substance: ACETAMINOPHEN
     Dosage: ONGOING = CHECKED
     Dates: start: 20200402
  32. PLASIL [Concomitant]
     Active Substance: METOCLOPRAMIDE HYDROCHLORIDE
     Dates: start: 20180625, end: 20180731
  33. CACIT (ITALY) [Concomitant]
     Dates: start: 20180915, end: 20190615

REACTIONS (15)
  - Diarrhoea [Not Recovered/Not Resolved]
  - Diarrhoea [Recovered/Resolved]
  - Diarrhoea [Not Recovered/Not Resolved]
  - Palmar-plantar erythrodysaesthesia syndrome [Recovered/Resolved]
  - Performance status decreased [Recovered/Resolved]
  - Febrile neutropenia [Recovered/Resolved]
  - Fatigue [Recovered/Resolved]
  - Dysaesthesia [Unknown]
  - Arthralgia [Not Recovered/Not Resolved]
  - Nausea [Unknown]
  - Dysgeusia [Recovered/Resolved]
  - Dysphagia [Recovered/Resolved]
  - Dysgeusia [Recovered/Resolved]
  - Nausea [Recovered/Resolved]
  - Hypokalaemia [Recovered/Resolved]

NARRATIVE: CASE EVENT DATE: 20180615
